FAERS Safety Report 11590501 (Version 1)
Quarter: 2015Q4

REPORT INFORMATION
  Report Type: Spontaneous
  Country: US (occurrence: None)
  Receive Date: 20151002
  Receipt Date: 20151002
  Transmission Date: 20160304
  Serious: Yes (Life-Threatening, Hospitalization, Other)
  Sender: FDA-Public Use
  Company Number: US-MDT-ADR-2015-01898

PATIENT
  Age: 29 Year
  Sex: Male

DRUGS (1)
  1. COMPOUNDED BACLOFEN INTRATHECAL 2500MCG/ML [Suspect]
     Active Substance: BACLOFEN
     Indication: MUSCLE SPASTICITY
     Dosage: 566/D

REACTIONS (8)
  - Blood pressure increased [None]
  - Vomiting [None]
  - Insomnia [None]
  - Tremor [None]
  - Agitation [None]
  - Nausea [None]
  - Heart rate increased [None]
  - Decreased appetite [None]
